FAERS Safety Report 7487538-8 (Version None)
Quarter: 2011Q1

REPORT INFORMATION
  Report Type: 
  Country: None (occurrence: None)
  Receive Date: 20110309
  Receipt Date: 20101020
  Transmission Date: 20110831
  Serious: No
  Sender: FDA-Public Use
  Company Number: 2010SP056426

PATIENT
  Age: 38 Year
  Sex: Female

DRUGS (3)
  1. SAPHRIS [Suspect]
     Indication: SCHIZOPHRENIA
     Dosage: 10 MG; BID; PO
     Route: 048
     Dates: start: 20100714, end: 20101020
  2. DEPAKOTE ER [Concomitant]
  3. LAMICTAL [Concomitant]

REACTIONS (2)
  - INCORRECT ROUTE OF DRUG ADMINISTRATION [None]
  - ALTERED VISUAL DEPTH PERCEPTION [None]
